FAERS Safety Report 8018173-0 (Version None)
Quarter: 2012Q1

REPORT INFORMATION
  Report Type: 
  Country: None (occurrence: None)
  Receive Date: 20120103
  Receipt Date: 20111220
  Transmission Date: 20120608
  Serious: Yes (Hospitalization)
  Sender: FDA-Public Use
  Company Number: KR-JNJFOC-20111209092

PATIENT
  Sex: Male
  Weight: 50.9 kg

DRUGS (3)
  1. REMICADE [Suspect]
     Indication: CROHN'S DISEASE
     Dosage: FREQ: 1
     Route: 042
     Dates: start: 20111216, end: 20111216
  2. AZATHIOPRINE [Concomitant]
     Indication: CROHN'S DISEASE
     Dosage: FREQ: 1
     Route: 048
     Dates: start: 20110812
  3. PENTASA [Concomitant]
     Indication: CROHN'S DISEASE
     Dosage: FREQ: 2
     Route: 048
     Dates: start: 20110812

REACTIONS (1)
  - SMALL INTESTINAL STENOSIS [None]
